FAERS Safety Report 8218132-9 (Version None)
Quarter: 2012Q1

REPORT INFORMATION
  Report Type: 
  Country: None (occurrence: None)
  Receive Date: 20120319
  Receipt Date: 20120306
  Transmission Date: 20120608
  Serious: Yes (Other)
  Sender: FDA-Public Use
  Company Number: US-ELI_LILLY_AND_COMPANY-US201201008100

PATIENT
  Sex: Female
  Weight: 87.075 kg

DRUGS (8)
  1. TRIGOSAMINE [Concomitant]
  2. OMEPRAZOLE [Concomitant]
  3. GEMFIBROZIL [Concomitant]
  4. MULTI-VITAMIN [Concomitant]
  5. CALCIUM CARBONATE [Concomitant]
  6. FORTEO [Suspect]
     Indication: OSTEOPOROSIS
     Dosage: 20 UG, QD
     Route: 058
     Dates: start: 20111229
  7. VITAMIN D [Concomitant]
  8. DIGOXIN [Concomitant]

REACTIONS (2)
  - DIPLOPIA [None]
  - RETINAL ISCHAEMIA [None]
